FAERS Safety Report 25255757 (Version 2)
Quarter: 2025Q2

REPORT INFORMATION
  Report Type: Spontaneous
  Country: AT (occurrence: AT)
  Receive Date: 20250430
  Receipt Date: 20250618
  Transmission Date: 20250716
  Serious: No
  Sender: PFIZER
  Company Number: AT-PFIZER INC-202500088243

PATIENT

DRUGS (1)
  1. MEDROXYPROGESTERONE [Suspect]
     Active Substance: MEDROXYPROGESTERONE

REACTIONS (3)
  - Drug dose omission by device [Unknown]
  - Syringe issue [Unknown]
  - Device leakage [Unknown]
